FAERS Safety Report 9405233 (Version 2)
Quarter: 2013Q3

REPORT INFORMATION
  Report Type: Spontaneous
  Country: BR (occurrence: BR)
  Receive Date: 20130717
  Receipt Date: 20130723
  Transmission Date: 20140515
  Serious: Yes (Other)
  Sender: FDA-Public Use
  Company Number: PHHY2013BR074709

PATIENT
  Age: 42 Year
  Sex: Male

DRUGS (2)
  1. CITALOPRAM SANDOZ [Suspect]
     Route: 048
     Dates: start: 20130618
  2. LAMITOR [Concomitant]

REACTIONS (7)
  - Neuropathy peripheral [Recovering/Resolving]
  - Depression [Not Recovered/Not Resolved]
  - Head discomfort [Not Recovered/Not Resolved]
  - Tremor [Recovering/Resolving]
  - Heart rate increased [Recovering/Resolving]
  - Irritability [Recovering/Resolving]
  - Headache [Not Recovered/Not Resolved]
